FAERS Safety Report 6096795-4 (Version None)
Quarter: 2009Q1

REPORT INFORMATION
  Report Type: 
  Country: None (occurrence: None)
  Receive Date: 20090227
  Receipt Date: 20090216
  Transmission Date: 20090719
  Serious: Yes (Hospitalization)
  Sender: FDA-Public Use
  Company Number: FR-PFIZER INC-2009167076

PATIENT

DRUGS (7)
  1. ZYVOXID [Suspect]
     Dosage: 1200 MG, 1X/DAY
     Route: 048
     Dates: start: 20081021, end: 20081210
  2. NEURONTIN [Concomitant]
     Dates: end: 20081213
  3. LANTUS [Concomitant]
     Dates: end: 20081213
  4. GLUCOPHAGE [Concomitant]
     Dates: end: 20081213
  5. COVERSYL [Concomitant]
     Dates: end: 20081213
  6. LASIX [Concomitant]
     Dates: end: 20081213
  7. VASTEN [Concomitant]
     Dates: end: 20081213

REACTIONS (2)
  - ANAEMIA [None]
  - RENAL FAILURE ACUTE [None]
